FAERS Safety Report 9293239 (Version 1)
Quarter: 2013Q2

REPORT INFORMATION
  Report Type: Spontaneous
  Country: US (occurrence: US)
  Receive Date: 20130516
  Receipt Date: 20130516
  Transmission Date: 20140414
  Serious: No
  Sender: FDA-Public Use
  Company Number: US-PFIZER INC-2013146539

PATIENT
  Sex: Male

DRUGS (2)
  1. LYRICA [Suspect]
     Dosage: 75 MG, 1X/DAY QHS
  2. LYRICA [Suspect]
     Dosage: 100 MG, 1X/DAY QHS

REACTIONS (3)
  - Myalgia [Unknown]
  - Drug intolerance [Unknown]
  - Circumstance or information capable of leading to medication error [Unknown]
